FAERS Safety Report 7518662-9 (Version None)
Quarter: 2011Q2

REPORT INFORMATION
  Report Type: 
  Country: None (occurrence: None)
  Receive Date: 20110602
  Receipt Date: 20110207
  Transmission Date: 20111010
  Serious: No
  Sender: FDA-Public Use
  Company Number: PHHY2011US06946

PATIENT
  Sex: Female

DRUGS (6)
  1. TASIGNA [Suspect]
     Indication: CHROMOSOME ANALYSIS ABNORMAL
     Dosage: 150 MG, BID
     Route: 048
     Dates: start: 20110114, end: 20110125
  2. ALLOPURINOL [Concomitant]
     Indication: CHRONIC MYELOID LEUKAEMIA
     Dosage: 100 MG, BID
  3. FAMOTIDINE [Concomitant]
     Indication: GASTROOESOPHAGEAL REFLUX DISEASE
     Dosage: 20 MG, QD
     Route: 048
  4. CELEBREX [Concomitant]
     Indication: NEUROPATHY PERIPHERAL
     Dosage: 200 MG, QD
     Route: 048
  5. TASIGNA [Interacting]
     Indication: CHRONIC MYELOID LEUKAEMIA
  6. PEPCID [Interacting]
     Dosage: UNK

REACTIONS (12)
  - ARTHRALGIA [None]
  - ANAEMIA [None]
  - THROMBOCYTOPENIA [None]
  - PLATELET COUNT DECREASED [None]
  - HEADACHE [None]
  - MYALGIA [None]
  - LEUKOCYTOSIS [None]
  - DRUG INTERACTION [None]
  - SPLENOMEGALY [None]
  - HAEMOGLOBIN DECREASED [None]
  - FATIGUE [None]
  - NAUSEA [None]
